FAERS Safety Report 19548545 (Version 1)
Quarter: 2021Q3

REPORT INFORMATION
  Report Type: Spontaneous
  Country: US (occurrence: US)
  Receive Date: 20210715
  Receipt Date: 20210715
  Transmission Date: 20211014
  Serious: No
  Sender: FDA-Public Use
  Company Number: None

PATIENT
  Age: 24 Year
  Sex: Female
  Weight: 95.4 kg

DRUGS (2)
  1. BALCOLTRA [Suspect]
     Active Substance: ETHINYL ESTRADIOL\LEVONORGESTREL
     Indication: POLYCYSTIC OVARIES
     Route: 048
     Dates: start: 20210519, end: 20210714
  2. PHENTERMINE. [Concomitant]
     Active Substance: PHENTERMINE

REACTIONS (8)
  - Dysmenorrhoea [None]
  - Nausea [None]
  - Intermenstrual bleeding [None]
  - Fatigue [None]
  - Therapy cessation [None]
  - Insomnia [None]
  - Heavy menstrual bleeding [None]
  - Pelvic pain [None]

NARRATIVE: CASE EVENT DATE: 20210701
